FAERS Safety Report 24697266 (Version 1)
Quarter: 2024Q4

REPORT INFORMATION
  Report Type: Spontaneous
  Country: PL (occurrence: PL)
  Receive Date: 20241204
  Receipt Date: 20241204
  Transmission Date: 20250114
  Serious: Yes (Death, Other)
  Sender: GILEAD
  Company Number: PL-GILEAD-2024-0695645

PATIENT
  Age: 54 Year
  Sex: Male

DRUGS (7)
  1. BIKTARVY [Suspect]
     Active Substance: BICTEGRAVIR SODIUM\EMTRICITABINE\TENOFOVIR ALAFENAMIDE FUMARATE
     Indication: HIV infection
     Dosage: UNK
     Route: 065
     Dates: start: 20230103
  2. BISEPTOL [Concomitant]
     Active Substance: SULFAMETHOXAZOLE\TRIMETHOPRIM
  3. FLUCONAZOLE [Concomitant]
     Active Substance: FLUCONAZOLE
  4. VORICONAZOLE [Concomitant]
     Active Substance: VORICONAZOLE
  5. UNSPECIFIED INGREDIENT [Concomitant]
     Active Substance: UNSPECIFIED INGREDIENT
  6. MANNITOL [Concomitant]
     Active Substance: MANNITOL
  7. DEXAMETHASONE [Concomitant]
     Active Substance: DEXAMETHASONE

REACTIONS (21)
  - Death [Fatal]
  - Multiple organ dysfunction syndrome [Unknown]
  - Pneumocystis jirovecii infection [Unknown]
  - Tuberculosis of central nervous system [Unknown]
  - Tuberculosis [Unknown]
  - Pancytopenia [Unknown]
  - Neutropenia [Unknown]
  - Lower gastrointestinal haemorrhage [Unknown]
  - Urethral haemorrhage [Unknown]
  - Haematochezia [Unknown]
  - Deafness [Unknown]
  - Cholestasis [Unknown]
  - Respiratory failure [Recovered/Resolved]
  - Coagulopathy [Unknown]
  - Lung opacity [Recovered/Resolved]
  - Fungal infection [Recovered/Resolved]
  - Anaemia [Unknown]
  - Diarrhoea [Unknown]
  - Dermatitis contact [Not Recovered/Not Resolved]
  - Visual impairment [Unknown]
  - Transaminases increased [Unknown]

NARRATIVE: CASE EVENT DATE: 20230209
